FAERS Safety Report 4512053-0 (Version None)
Quarter: 2004Q4

REPORT INFORMATION
  Report Type: 
  Country: None (occurrence: None)
  Receive Date: 20041123
  Receipt Date: 20041022
  Transmission Date: 20050328
  Serious: No
  Sender: FDA-Public Use
  Company Number: A04200401077

PATIENT
  Age: 44 Year
  Sex: Male

DRUGS (5)
  1. PLAVIX [Suspect]
     Indication: CORONARY ANGIOPLASTY
     Dosage: 75 MG OD ORAL
     Route: 048
     Dates: start: 20040601, end: 20040801
  2. ACETYLSALICYLIC ACID SRT [Concomitant]
  3. METOHEXAL 50 (METOPROLOL TARTRATE) [Concomitant]
  4. RAMIPRIL 5/25 (RAMIPRIL) [Concomitant]
  5. SIMVASTATIN 40 (SIMVASTATIN) [Concomitant]

REACTIONS (1)
  - PERICARDIAL EFFUSION [None]
